FAERS Safety Report 18969718 (Version 1)
Quarter: 2021Q1

REPORT INFORMATION
  Report Type: Spontaneous
  Country: US (occurrence: US)
  Receive Date: 20210304
  Receipt Date: 20210304
  Transmission Date: 20210420
  Serious: Yes (Hospitalization, Other)
  Sender: FDA-Public Use
  Company Number: NVSC2021US044856

PATIENT
  Age: 64 Year
  Sex: Female
  Weight: 102.06 kg

DRUGS (2)
  1. TEGRETOL [Suspect]
     Active Substance: CARBAMAZEPINE
     Indication: PRODUCT USED FOR UNKNOWN INDICATION
     Route: 065
  2. IMITREX [Concomitant]
     Active Substance: SUMATRIPTAN SUCCINATE
     Indication: PRODUCT USED FOR UNKNOWN INDICATION
     Route: 065

REACTIONS (14)
  - Dysgeusia [Recovered/Resolved]
  - Abdominal pain [Unknown]
  - Nausea [Unknown]
  - Cerebrovascular accident [Unknown]
  - Retinal vascular occlusion [Unknown]
  - Hypoaesthesia [Recovered/Resolved]
  - Feeling abnormal [Unknown]
  - Retinal vascular disorder [Unknown]
  - Vomiting [Unknown]
  - Vascular injury [Recovering/Resolving]
  - Blood pressure systolic [Recovered/Resolved]
  - Migraine [Unknown]
  - White blood cell count decreased [Unknown]
  - Left ventricular failure [Unknown]

NARRATIVE: CASE EVENT DATE: 20210108
